FAERS Safety Report 4299211-8 (Version None)
Quarter: 2004Q1

REPORT INFORMATION
  Report Type: 
  Country: None (occurrence: None)
  Receive Date: 20040217
  Receipt Date: 20040206
  Transmission Date: 20041129
  Serious: No
  Sender: FDA-Public Use
  Company Number: 04H-141-0249619-00

PATIENT

DRUGS (4)
  1. LEUCOVORIN CALCIUM [Suspect]
     Indication: CHEMOTHERAPY
     Dosage: 200 MG/M2, 2 HR INFUSION, INTRAVENOUS
     Route: 042
  2. OXALIPLATIN [Suspect]
     Indication: CHEMOTHERAPY
     Dosage: 85 MG/M2, 2 HOUR, INFUSION, INTRAVENOUS
     Route: 042
  3. FLUOROURACIL [Suspect]
     Indication: CHEMOTHERAPY
     Dosage: 400 MG/M2, 1 IN 1 D, INTRAVENOUS
     Route: 042
  4. GRANISETRON [Concomitant]

REACTIONS (1)
  - NEUTROPENIA [None]
